FAERS Safety Report 8769573 (Version 2)
Quarter: 2012Q4

REPORT INFORMATION
  Report Type: 
  Country: BR (occurrence: BR)
  Receive Date: 20120905
  Receipt Date: 20120918
  Transmission Date: 20130627
  Serious: Yes (Hospitalization, Other)
  Sender: FDA-Public Use
  Company Number: PHHY2012BR075522

PATIENT
  Age: 62 Year
  Sex: Male

DRUGS (6)
  1. FORASEQ [Suspect]
     Indication: CHRONIC OBSTRUCTIVE PULMONARY DISEASE
     Dosage: UNK UKN, Q12H
     Dates: start: 201004, end: 201104
  2. RITONAVIR [Concomitant]
     Dosage: UNK UKN, UNK
  3. LAMIVUDINE [Concomitant]
     Dosage: UNK UKN, UNK
  4. TENOFOVIR [Concomitant]
     Dosage: UNK UKN, UNK
  5. DARUNAVIR [Concomitant]
     Dosage: UNK UKN, UNK
  6. RALTEGRAVIR [Concomitant]
     Dosage: UNK UKN, UNK

REACTIONS (6)
  - Chronic obstructive pulmonary disease [Recovered/Resolved]
  - Respiratory failure [Recovered/Resolved]
  - Lung hyperinflation [Recovered/Resolved]
  - Infection [Recovered/Resolved]
  - Ecchymosis [Recovered/Resolved]
  - Purpura [Recovered/Resolved]
